FAERS Safety Report 8548473-7 (Version None)
Quarter: 2012Q3

REPORT INFORMATION
  Report Type: 
  Country: None (occurrence: None)
  Receive Date: 20120717
  Receipt Date: 20110919
  Transmission Date: 20120928
  Serious: Yes (Hospitalization)
  Sender: FDA-Public Use
  Company Number: AU-006205

PATIENT
  Age: 39 Year
  Sex: Female

DRUGS (7)
  1. MINIRIN/DDAVP (MINIRIN SPRAY) 10 UG (NOT SPECIFIED) [Suspect]
     Indication: DIABETES INSIPIDUS
     Dosage: (NASAL)
     Route: 045
     Dates: start: 20110826, end: 20110826
  2. PROGYNOVA [Concomitant]
  3. PREDNISOLONE [Concomitant]
  4. DDAVP [Suspect]
     Indication: DIABETES INSIPIDUS
     Dosage: (ORAL)
     Route: 048
  5. LEVOTHYROXINE SODIUM [Concomitant]
  6. PROVERA [Concomitant]
  7. PANTOPRAZOLE [Concomitant]

REACTIONS (1)
  - HYPONATRAEMIA [None]
